FAERS Safety Report 6568881-3 (Version None)
Quarter: 2010Q1

REPORT INFORMATION
  Report Type: 
  Country: None (occurrence: None)
  Receive Date: 20100203
  Receipt Date: 20100121
  Transmission Date: 20100710
  Serious: Yes (Disabling)
  Sender: FDA-Public Use
  Company Number: GR-JNJCH-2010002934

PATIENT
  Age: 7 Month

DRUGS (1)
  1. CETIRIZINE HCL [Suspect]
     Indication: RHINITIS ALLERGIC
     Dosage: TEXT:2.5 MG QD, 5 DROPS
     Route: 048
     Dates: start: 20100110, end: 20100117

REACTIONS (1)
  - EXTRAPYRAMIDAL DISORDER [None]
